FAERS Safety Report 7242765-X (Version None)
Quarter: 2011Q1

REPORT INFORMATION
  Report Type: 
  Country: None (occurrence: None)
  Receive Date: 20110125
  Receipt Date: 20110119
  Transmission Date: 20110831
  Serious: Yes (Other)
  Sender: FDA-Public Use
  Company Number: BR-PFIZER INC-2010137342

PATIENT
  Age: 62 Year
  Sex: Female
  Weight: 67 kg

DRUGS (7)
  1. TRAZODONE HYDROCHLORIDE [Concomitant]
     Indication: DEPRESSION
     Dosage: UNK
     Dates: start: 20100501
  2. ALPRAZOLAM [Concomitant]
     Indication: SLEEP DISORDER
  3. CRESTOR [Concomitant]
     Indication: BLOOD CHOLESTEROL INCREASED
     Dosage: UNK
  4. CHAMPIX [Suspect]
     Dosage: 0.5 MG, 2X/DAY, EVERY 12 HOURS
     Route: 048
  5. PANTOPRAZOLE [Concomitant]
     Indication: INCREASED BRONCHIAL SECRETION
     Dosage: UNK
     Dates: start: 20100801
  6. CHAMPIX [Suspect]
     Indication: TOBACCO USER
     Dosage: UNK
     Route: 048
     Dates: start: 20101013
  7. ALPRAZOLAM [Concomitant]
     Indication: ANXIETY
     Dosage: HALF TABLET
     Dates: start: 20060101

REACTIONS (1)
  - INTESTINAL FUNCTIONAL DISORDER [None]
